FAERS Safety Report 4423568-8 (Version None)
Quarter: 2004Q3

REPORT INFORMATION
  Report Type: 
  Country: None (occurrence: None)
  Receive Date: 20040805
  Receipt Date: 20040723
  Transmission Date: 20050211
  Serious: Yes (Hospitalization)
  Sender: FDA-Public Use
  Company Number: DE-JNJFOC-20040706115

PATIENT
  Age: 40 Year
  Sex: Male

DRUGS (4)
  1. REMICADE [Suspect]
     Indication: ANKYLOSING SPONDYLITIS
     Dosage: SEE IMAGE
     Route: 042
     Dates: start: 20040218, end: 20040218
  2. REMICADE [Suspect]
     Indication: ANKYLOSING SPONDYLITIS
     Dosage: SEE IMAGE
     Route: 042
     Dates: start: 20040302, end: 20040302
  3. REMICADE [Suspect]
     Indication: ANKYLOSING SPONDYLITIS
     Dosage: SEE IMAGE
     Route: 042
     Dates: start: 20040422, end: 20040422
  4. REMICADE [Suspect]
     Indication: ANKYLOSING SPONDYLITIS
     Dosage: SEE IMAGE
     Route: 042
     Dates: start: 20040625

REACTIONS (2)
  - GASTROINTESTINAL DISORDER [None]
  - PROSTATITIS [None]
